FAERS Safety Report 5105341-0 (Version None)
Quarter: 2006Q3

REPORT INFORMATION
  Report Type: 
  Country: None (occurrence: None)
  Receive Date: 20060731
  Receipt Date: 20050602
  Transmission Date: 20061208
  Serious: Yes (Death)
  Sender: FDA-Public Use
  Company Number: US-JNJFOC-20050403586

PATIENT
  Age: 48 Year
  Sex: Female

DRUGS (1)
  1. RISPERDAL [Suspect]
     Indication: SLEEP DISORDER
     Dosage: 1 MG, 1 IN 1 DAY, ORAL
     Route: 048
     Dates: start: 20040401

REACTIONS (2)
  - COMPLETED SUICIDE [None]
  - DEPRESSION [None]
